FAERS Safety Report 6570533-0 (Version None)
Quarter: 2010Q1

REPORT INFORMATION
  Report Type: 
  Country: None (occurrence: None)
  Receive Date: 20100204
  Receipt Date: 20100125
  Transmission Date: 20100710
  Serious: Yes (Death)
  Sender: FDA-Public Use
  Company Number: US-JNJFOC-20090801397

PATIENT
  Age: 11 Month
  Sex: Male
  Weight: 10 kg

DRUGS (1)
  1. UNKNOWN TYLENOL PRODUCT [Suspect]
     Indication: DRUG USE FOR UNKNOWN INDICATION
     Dosage: ^NL #1 DOSE BY WEIGHT^, 4/28/99-4/30/99; 3 DAYS
     Route: 048

REACTIONS (6)
  - COAGULOPATHY [None]
  - DEATH [None]
  - HEPATIC FAILURE [None]
  - JAUNDICE [None]
  - LIVER FUNCTION TEST ABNORMAL [None]
  - SOMNOLENCE [None]
